FAERS Safety Report 21546595 (Version 1)
Quarter: 2022Q4

REPORT INFORMATION
  Report Type: Spontaneous
  Country: CZ (occurrence: CZ)
  Receive Date: 20221103
  Receipt Date: 20221103
  Transmission Date: 20230112
  Serious: Yes (Other)
  Sender: FDA-Public Use
  Company Number: CZ-GILEAD-2022-0603559

PATIENT
  Sex: Female

DRUGS (2)
  1. TRUVADA [Suspect]
     Active Substance: EMTRICITABINE\TENOFOVIR DISOPROXIL FUMARATE
     Indication: HIV infection
     Dosage: UNK
     Route: 065
  2. RALTEGRAVIR [Concomitant]
     Active Substance: RALTEGRAVIR

REACTIONS (2)
  - Caesarean delivery on maternal request [Recovered/Resolved]
  - Maternal exposure during pregnancy [Recovered/Resolved]
